FAERS Safety Report 4462526-4 (Version None)
Quarter: 2004Q3

REPORT INFORMATION
  Report Type: 
  Country: None (occurrence: None)
  Receive Date: 20040929
  Receipt Date: 20030130
  Transmission Date: 20050211
  Serious: Yes (Hospitalization)
  Sender: FDA-Public Use
  Company Number: US-MERCK-0301USA03198

PATIENT
  Age: 55 Year
  Sex: Male
  Weight: 65 kg

DRUGS (6)
  1. EXCEDRIN (MIGRAINE) [Suspect]
     Route: 065
  2. ALLOPURINOL [Concomitant]
     Indication: GOUT
     Route: 065
  3. IBUPROFEN [Suspect]
     Route: 065
  4. ACCUPRIL [Concomitant]
     Indication: HYPERTENSION
     Route: 065
  5. VIOXX [Suspect]
     Indication: ARTHRALGIA
     Route: 048
     Dates: start: 20011015, end: 20011022
  6. FLOMAX [Concomitant]
     Route: 065

REACTIONS (19)
  - ARTERIOVENOUS MALFORMATION [None]
  - BLOOD CHLORIDE INCREASED [None]
  - BLOOD GLUCOSE INCREASED [None]
  - BLOOD PRESSURE DECREASED [None]
  - BLOOD UREA INCREASED [None]
  - BOWEL SOUNDS ABNORMAL [None]
  - DIVERTICULUM INTESTINAL [None]
  - DIZZINESS POSTURAL [None]
  - DRY SKIN [None]
  - DUODENAL ULCER [None]
  - ESSENTIAL HYPERTENSION [None]
  - HAEMODYNAMIC INSTABILITY [None]
  - HAEMORRHOIDS [None]
  - LYMPHOCYTE COUNT INCREASED [None]
  - POLYP [None]
  - PROTHROMBIN TIME PROLONGED [None]
  - SKIN TURGOR DECREASED [None]
  - TACHYCARDIA [None]
  - UPPER GASTROINTESTINAL HAEMORRHAGE [None]
